FAERS Safety Report 16646912 (Version 1)
Quarter: 2019Q3

REPORT INFORMATION
  Report Type: Spontaneous
  Country: CN (occurrence: CN)
  Receive Date: 20190730
  Receipt Date: 20190730
  Transmission Date: 20191004
  Serious: Yes (Other)
  Sender: FDA-Public Use
  Company Number: CN-PFIZER INC-2019320181

PATIENT
  Age: 85 Year
  Sex: Female
  Weight: 55 kg

DRUGS (1)
  1. METHYLPREDNISOLONE SODIUM SUCCINATE. [Suspect]
     Active Substance: METHYLPREDNISOLONE SODIUM SUCCINATE
     Indication: DYSPNOEA
     Dosage: 20 MG, 2X/DAY
     Route: 041
     Dates: start: 20190703, end: 20190704

REACTIONS (4)
  - Blood pressure increased [Recovering/Resolving]
  - Delirium [Recovering/Resolving]
  - Flushing [Recovering/Resolving]
  - Halo vision [Recovering/Resolving]

NARRATIVE: CASE EVENT DATE: 20190703
